FAERS Safety Report 8202921-0 (Version None)
Quarter: 2012Q1

REPORT INFORMATION
  Report Type: 
  Country: None (occurrence: None)
  Receive Date: 20120312
  Receipt Date: 20120306
  Transmission Date: 20120608
  Serious: Yes (Congenital Anomaly)
  Sender: FDA-Public Use
  Company Number: US-FRI-1000028952

PATIENT
  Sex: Male

DRUGS (1)
  1. LEXAPRO [Suspect]
     Route: 064

REACTIONS (1)
  - COARCTATION OF THE AORTA [None]
